FAERS Safety Report 10602087 (Version 2)
Quarter: 2014Q4

REPORT INFORMATION
  Report Type: Spontaneous
  Country: FI (occurrence: FI)
  Receive Date: 20141124
  Receipt Date: 20141124
  Transmission Date: 20150529
  Serious: Yes (Hospitalization)
  Sender: FDA-Public Use
  Company Number: FI-BRISTOL-MYERS SQUIBB COMPANY-21571971

PATIENT
  Age: 66 Year
  Sex: Female

DRUGS (11)
  1. PANADOL [Concomitant]
     Active Substance: ACETAMINOPHEN
     Indication: PAIN
  2. NEXIUM [Concomitant]
     Active Substance: ESOMEPRAZOLE MAGNESIUM
  3. METOJECT [Concomitant]
     Active Substance: METHOTREXATE SODIUM
     Indication: RHEUMATOID ARTHRITIS
  4. PREDNISOLONE. [Concomitant]
     Active Substance: PREDNISOLONE
     Indication: RHEUMATOID ARTHRITIS
  5. CALCICHEW D3 [Concomitant]
     Active Substance: CALCIUM\CHOLECALCIFEROL
  6. ORENCIA [Suspect]
     Active Substance: ABATACEPT
     Indication: RHEUMATOID ARTHRITIS
     Route: 058
     Dates: start: 20140911, end: 20141022
  7. ARCOXIA [Concomitant]
     Active Substance: ETORICOXIB
     Indication: PAIN
  8. CELEBRA [Concomitant]
     Active Substance: CELECOXIB
  9. FOLIC ACID. [Concomitant]
     Active Substance: FOLIC ACID
  10. METHOTREXATE [Concomitant]
     Active Substance: METHOTREXATE
     Indication: RHEUMATOID ARTHRITIS
  11. TRADOLAN [Concomitant]
     Active Substance: TRAMADOL
     Indication: PAIN

REACTIONS (3)
  - Hypertension [Not Recovered/Not Resolved]
  - Headache [Recovering/Resolving]
  - Palpitations [Not Recovered/Not Resolved]

NARRATIVE: CASE EVENT DATE: 201409
